FAERS Safety Report 15860699 (Version 1)
Quarter: 2019Q1

REPORT INFORMATION
  Report Type: Spontaneous
  Country: BR (occurrence: BR)
  Receive Date: 20190124
  Receipt Date: 20190124
  Transmission Date: 20190417
  Serious: Yes (Death)
  Sender: FDA-Public Use
  Company Number: BR-TOLMAR, INC.-2019BR000691

PATIENT

DRUGS (1)
  1. ELIGARD [Suspect]
     Active Substance: LEUPROLIDE ACETATE
     Indication: PROSTATE CANCER METASTATIC
     Dosage: 45 MG, CYCLIC
     Route: 058
     Dates: start: 20180613

REACTIONS (3)
  - Acute kidney injury [Fatal]
  - Cardiac failure congestive [Fatal]
  - Prostate cancer [Fatal]

NARRATIVE: CASE EVENT DATE: 20181006
